FAERS Safety Report 6295724-8 (Version None)
Quarter: 2009Q3

REPORT INFORMATION
  Report Type: 
  Country: None (occurrence: None)
  Receive Date: 20090803
  Receipt Date: 20090803
  Transmission Date: 20100115
  Serious: Yes (Disabling)
  Sender: FDA-Public Use
  Company Number: None

PATIENT
  Age: 49 Year
  Sex: Female
  Weight: 104.3273 kg

DRUGS (4)
  1. ZICAM COLD REMEDY [Suspect]
     Indication: NASOPHARYNGITIS
     Dosage: 2 SPRAYS 2X DAY NASAL SPRAY PROB. 48 X YR X 6 YRS
     Route: 045
     Dates: start: 20030101, end: 20090101
  2. ZICAM COLD REMEDY [Suspect]
     Indication: OROPHARYNGEAL PAIN
     Dosage: 2 SPRAYS 2X DAY NASAL SPRAY PROB. 48 X YR X 6 YRS
     Route: 045
     Dates: start: 20030101, end: 20090101
  3. ZICAM COLD REMEDY [Suspect]
  4. ZICAM COLD REMEDY [Suspect]

REACTIONS (1)
  - ANOSMIA [None]
